FAERS Safety Report 4489471-2 (Version None)
Quarter: 2004Q4

REPORT INFORMATION
  Report Type: 
  Country: None (occurrence: None)
  Receive Date: 20041026
  Receipt Date: 20041013
  Transmission Date: 20050328
  Serious: Yes (Hospitalization)
  Sender: FDA-Public Use
  Company Number: 2004234782DE

PATIENT
  Age: 60 Year
  Sex: Male

DRUGS (2)
  1. BEXTRA [Suspect]
     Indication: BACK PAIN
     Dosage: 20 MG, SINGLE, ORAL
     Route: 048
     Dates: start: 20040911, end: 20040911
  2. REPAGLINIDE (REPAGLINIDE) [Suspect]
     Indication: DIABETES MELLITUS NON-INSULIN-DEPENDENT
     Dosage: 3 MG, QD, ORAL
     Route: 048
     Dates: start: 20040601, end: 20040911

REACTIONS (3)
  - BLOOD LACTATE DEHYDROGENASE INCREASED [None]
  - JAUNDICE CHOLESTATIC [None]
  - TRANSAMINASES INCREASED [None]
